FAERS Safety Report 6826313-1 (Version None)
Quarter: 2010Q3

REPORT INFORMATION
  Report Type: 
  Country: None (occurrence: None)
  Receive Date: 20100709
  Receipt Date: 20100630
  Transmission Date: 20110219
  Serious: Yes (Other)
  Sender: FDA-Public Use
  Company Number: PHHY2010BR43143

PATIENT
  Age: 60 Year
  Sex: Female

DRUGS (2)
  1. FORASEQ [Suspect]
     Indication: DYSPNOEA
     Dosage: 12/200 MCG
  2. FORASEQ [Suspect]
     Dosage: 12/400 MCG ,2 INHALATIONS

REACTIONS (4)
  - CARDIAC OPERATION [None]
  - COUGH [None]
  - DISCOMFORT [None]
  - DYSPNOEA [None]
